FAERS Safety Report 8226351-0 (Version None)
Quarter: 2012Q1

REPORT INFORMATION
  Report Type: 
  Country: None (occurrence: None)
  Receive Date: 20120321
  Receipt Date: 20120315
  Transmission Date: 20120608
  Serious: Yes (Other)
  Sender: FDA-Public Use
  Company Number: JP-VERTEX PHARMACEUTICALS INC.-AE-2012-003956

PATIENT
  Age: 60 Year
  Sex: Female

DRUGS (8)
  1. TELAVIC (TELAPREVIR) [Suspect]
     Indication: HEPATITIS C
     Route: 048
     Dates: start: 20111209, end: 20120302
  2. REBETOL [Concomitant]
     Route: 048
     Dates: start: 20120206, end: 20120211
  3. REBETOL [Concomitant]
     Indication: HEPATITIS C
     Route: 048
     Dates: start: 20111209, end: 20120202
  4. ALLEGRA [Concomitant]
     Route: 048
     Dates: start: 20111212
  5. REBETOL [Concomitant]
     Route: 048
     Dates: start: 20120207, end: 20120212
  6. PEG-INTRON [Concomitant]
     Indication: HEPATITIS C
     Route: 058
     Dates: start: 20111209, end: 20120217
  7. REBETOL [Concomitant]
     Route: 048
     Dates: start: 20120203
  8. REBETOL [Concomitant]
     Route: 048
     Dates: start: 20120213, end: 20120302

REACTIONS (2)
  - HAEMOGLOBIN DECREASED [None]
  - RETINOPATHY [None]
